FAERS Safety Report 8344148-8 (Version None)
Quarter: 2012Q2

REPORT INFORMATION
  Report Type: 
  Country: None (occurrence: None)
  Receive Date: 20120508
  Receipt Date: 20120502
  Transmission Date: 20120825
  Serious: Yes (Hospitalization, Other)
  Sender: FDA-Public Use
  Company Number: PHFR2011GB04591

PATIENT
  Sex: Female

DRUGS (5)
  1. CLOZARIL [Suspect]
     Dosage: 400 MG, DAILY
     Route: 048
     Dates: start: 20090101
  2. CLINDAMYCIN [Concomitant]
     Indication: EAR INFECTION
     Dosage: UNK UKN, UNK
     Route: 048
     Dates: start: 20120417
  3. FLUOXETINE [Concomitant]
     Indication: DEPRESSION
     Dosage: 60 MG, DAILY
     Route: 048
     Dates: start: 20110607
  4. VANCOMYCIN [Concomitant]
     Indication: EAR INFECTION
     Dosage: UNK UKN, UNK
     Route: 048
     Dates: start: 20120410, end: 20120417
  5. CLOZARIL [Suspect]
     Indication: SCHIZOAFFECTIVE DISORDER
     Dosage: 550 MG/ DAY
     Route: 048
     Dates: start: 20070914

REACTIONS (7)
  - ANGINA PECTORIS [None]
  - SKIN INFECTION [None]
  - LOWER RESPIRATORY TRACT INFECTION [None]
  - OTITIS EXTERNA [None]
  - WHITE BLOOD CELL COUNT INCREASED [None]
  - NEUTROPHIL COUNT INCREASED [None]
  - URINARY INCONTINENCE [None]
